FAERS Safety Report 10250825 (Version 1)
Quarter: 2014Q2

REPORT INFORMATION
  Report Type: Spontaneous
  Country: DE (occurrence: DE)
  Receive Date: 20140620
  Receipt Date: 20140620
  Transmission Date: 20141212
  Serious: Yes (Death, Life-Threatening)
  Sender: FDA-Public Use
  Company Number: DE-WATSON-2014-13020

PATIENT
  Age: 74 Year
  Sex: Female

DRUGS (6)
  1. RAMIPRIL (UNKNOWN) [Suspect]
     Indication: PRODUCT USED FOR UNKNOWN INDICATION
     Dosage: 5 MG, DAILY
     Route: 048
     Dates: end: 20140320
  2. TAVOR                              /00273201/ [Concomitant]
     Indication: PRODUCT USED FOR UNKNOWN INDICATION
     Dosage: 3 MG, DAILY
     Route: 048
     Dates: start: 20140304, end: 20140311
  3. TAVOR                              /00273201/ [Concomitant]
     Dosage: 4 MG, DAILY
     Route: 048
     Dates: start: 20140312, end: 20140320
  4. L-THYROXINE                        /00068001/ [Concomitant]
     Indication: PRODUCT USED FOR UNKNOWN INDICATION
     Dosage: 100 ?G, DAILY
     Route: 048
     Dates: end: 20140320
  5. METFORMIN [Concomitant]
     Indication: PRODUCT USED FOR UNKNOWN INDICATION
     Dosage: 1000 MG, DAILY
     Route: 048
     Dates: end: 20140320
  6. KALINOR                            /00031402/ [Concomitant]
     Indication: PRODUCT USED FOR UNKNOWN INDICATION
     Dosage: 1 DF, DAILY
     Route: 048
     Dates: start: 20140315, end: 20140320

REACTIONS (4)
  - Myocardial infarction [Fatal]
  - Spinal disorder [Unknown]
  - Myosclerosis [Unknown]
  - Stress [Unknown]
